FAERS Safety Report 18123346 (Version 1)
Quarter: 2020Q3

REPORT INFORMATION
  Report Type: Spontaneous
  Country: US (occurrence: US)
  Receive Date: 20200806
  Receipt Date: 20200806
  Transmission Date: 20201103
  Serious: Yes (Hospitalization)
  Sender: FDA-Public Use
  Company Number: None

PATIENT
  Age: 40 Year
  Sex: Male

DRUGS (3)
  1. DESCOVY [Suspect]
     Active Substance: EMTRICITABINE\TENOFOVIR ALAFENAMIDE FUMARATE
     Indication: HIV INFECTION
     Route: 048
     Dates: start: 20191102
  2. TRAZODONE [Concomitant]
     Active Substance: TRAZODONE HYDROCHLORIDE
  3. FINASTERIDE. [Concomitant]
     Active Substance: FINASTERIDE

REACTIONS (1)
  - Ankle fracture [None]

NARRATIVE: CASE EVENT DATE: 20200806
